FAERS Safety Report 5315542-4 (Version None)
Quarter: 2007Q2

REPORT INFORMATION
  Report Type: 
  Country: None (occurrence: None)
  Receive Date: 20070501
  Receipt Date: 20070501
  Transmission Date: 20071010
  Serious: Yes (Hospitalization)
  Sender: FDA-Public Use
  Company Number: None

PATIENT
  Age: 80 Year
  Sex: Male
  Weight: 79.2 kg

DRUGS (1)
  1. WARFARIN SODIUM [Suspect]
     Indication: HEART VALVE REPLACEMENT
     Dosage: 2.5MG DAILY EXCEPT 5MG TUTHSA

REACTIONS (4)
  - FALL [None]
  - HAEMOGLOBIN DECREASED [None]
  - HUMERUS FRACTURE [None]
  - INTERNATIONAL NORMALISED RATIO INCREASED [None]
